FAERS Safety Report 8877549 (Version 1)
Quarter: 2012Q4

REPORT INFORMATION
  Report Type: Spontaneous
  Country: US (occurrence: None)
  Receive Date: 20121101
  Receipt Date: 20121101
  Transmission Date: 20130627
  Serious: No
  Sender: FDA-Public Use
  Company Number: None

PATIENT
  Sex: Female

DRUGS (1)
  1. MITOMYCIN [Suspect]
     Dosage: 40mg/40ml 1 time bladder irragation
     Dates: start: 20120315

REACTIONS (1)
  - Product quality issue [None]
